FAERS Safety Report 7792699-7 (Version None)
Quarter: 2011Q4

REPORT INFORMATION
  Report Type: 
  Country: None (occurrence: None)
  Receive Date: 20111003
  Receipt Date: 20110922
  Transmission Date: 20120403
  Serious: Yes (Hospitalization)
  Sender: FDA-Public Use
  Company Number: JP-MERCK-1108USA01050

PATIENT
  Age: 74 Year
  Sex: Female

DRUGS (7)
  1. FOSAMAX [Suspect]
     Indication: OSTEOPOROSIS
     Route: 048
     Dates: start: 20080101, end: 20100918
  2. PREDNISOLONE [Suspect]
     Indication: NEPHRITIS
     Route: 048
     Dates: start: 20050101
  3. LANSOPRAZOLE [Concomitant]
     Indication: GASTRITIS
     Route: 048
  4. MOZUN [Concomitant]
     Indication: INSOMNIA
     Route: 048
  5. PRAVASTATIN SODIUM [Concomitant]
     Indication: HYPERLIPIDAEMIA
     Route: 048
  6. NORVASC [Concomitant]
     Indication: HYPERTENSION
     Route: 048
  7. ALLOPURINOL [Concomitant]
     Indication: HYPERURICAEMIA
     Route: 048

REACTIONS (1)
  - ABSCESS [None]
